FAERS Safety Report 8391442-0 (Version None)
Quarter: 2012Q2

REPORT INFORMATION
  Report Type: 
  Country: None (occurrence: None)
  Receive Date: 20120529
  Receipt Date: 20120515
  Transmission Date: 20120825
  Serious: Yes (Hospitalization)
  Sender: FDA-Public Use
  Company Number: FR-MYLANLABS-2012S1010022

PATIENT
  Age: 43 Year
  Sex: Male

DRUGS (7)
  1. RIBAVIRIN [Concomitant]
     Indication: HEPATITIS C
     Route: 065
  2. ACETAMINOPHEN [Concomitant]
     Route: 065
  3. OFLOXACIN [Concomitant]
     Indication: PROSTATITIS
     Route: 065
  4. INTERFERON [Concomitant]
     Indication: HEPATITIS C
     Route: 065
  5. CLONAZEPAM [Concomitant]
     Route: 065
  6. BUPRENORPHINE [Concomitant]
     Dosage: 12 MG/DAY
     Route: 065
  7. OLANZAPINE [Suspect]
     Indication: MENTAL DISORDER
     Route: 065

REACTIONS (1)
  - DRUG RASH WITH EOSINOPHILIA AND SYSTEMIC SYMPTOMS [None]
